FAERS Safety Report 14870521 (Version 2)
Quarter: 2018Q3

REPORT INFORMATION
  Report Type: Spontaneous
  Country: US (occurrence: US)
  Receive Date: 20180509
  Receipt Date: 20180725
  Transmission Date: 20181010
  Serious: Yes (Hospitalization, Other)
  Sender: FDA-Public Use
  Company Number: US-BAYER-2018-088673

PATIENT
  Age: 43 Year
  Sex: Female
  Weight: 77.1 kg

DRUGS (7)
  1. CALCIUM [Concomitant]
     Active Substance: CALCIUM
     Dosage: UNK
     Route: 048
  2. ALLEGRA [Concomitant]
     Active Substance: FEXOFENADINE HYDROCHLORIDE
     Dosage: 180 MG, QD
     Route: 048
  3. ATORVASTATIN [Concomitant]
     Active Substance: ATORVASTATIN
  4. MIRENA [Suspect]
     Active Substance: LEVONORGESTREL
     Indication: CONTRACEPTION
     Dosage: 20 MCG/24HR, CONT
     Route: 015
     Dates: start: 20180216, end: 20180409
  5. IRON [Concomitant]
     Active Substance: IRON
     Route: 048
  6. SINGULAIR [Concomitant]
     Active Substance: MONTELUKAST SODIUM
     Route: 048
  7. PROVERA [Concomitant]
     Active Substance: MEDROXYPROGESTERONE ACETATE
     Dosage: 10 MG, QD
     Route: 048

REACTIONS (9)
  - Device expulsion [None]
  - Abdominal pain lower [None]
  - Menorrhagia [None]
  - Dizziness [None]
  - Haemorrhagic anaemia [None]
  - Dyspnoea [None]
  - Post procedural discomfort [None]
  - Genital haemorrhage [None]
  - Palpitations [None]

NARRATIVE: CASE EVENT DATE: 201803
